FAERS Safety Report 9747645 (Version 2)
Quarter: 2013Q4

REPORT INFORMATION
  Report Type: Spontaneous
  Country: US (occurrence: None)
  Receive Date: 20131205
  Receipt Date: 20131217
  Transmission Date: 20140711
  Serious: Yes (Hospitalization)
  Sender: FDA-Public Use
  Company Number: VAL_02841_2013

PATIENT
  Sex: Male

DRUGS (10)
  1. METOPROLOL [Suspect]
     Indication: HYPERTENSION
     Dosage: DF
     Route: 048
     Dates: start: 20111230, end: 20131119
  2. LOSARTAN [Suspect]
     Indication: HYPERTENSION
     Route: 048
     Dates: start: 20100922, end: 20131125
  3. BABY ASPIRIN [Concomitant]
  4. LIPITOR [Concomitant]
  5. COREG [Concomitant]
  6. PLAVIX [Concomitant]
  7. TRICOR [Concomitant]
  8. PROZAC [Concomitant]
  9. ZANTAC [Concomitant]
  10. CLARITIN-D [Concomitant]

REACTIONS (9)
  - Hypotension [None]
  - Myocardial infarction [None]
  - Feeling abnormal [None]
  - Decreased activity [None]
  - Cough [None]
  - Diarrhoea [None]
  - Arthralgia [None]
  - Fatigue [None]
  - Hypoacusis [None]
